FAERS Safety Report 8867062 (Version 1)
Quarter: 2012Q4

REPORT INFORMATION
  Report Type: 
  Country: US (occurrence: US)
  Receive Date: 20121025
  Receipt Date: 20121025
  Transmission Date: 20130627
  Serious: No
  Sender: FDA-Public Use
  Company Number: US-AMGEN-USASP2012014476

PATIENT
  Age: 61 Year
  Sex: Female

DRUGS (8)
  1. ENBREL [Suspect]
     Indication: PRODUCT USED FOR UNKNOWN INDICATION
     Dosage: 50 mg, qwk
     Route: 058
  2. CELEBREX [Concomitant]
     Dosage: 50 mg, UNK
  3. SYNTHROID [Concomitant]
     Dosage: 25 mug, UNK
  4. ASA [Concomitant]
     Dosage: 81 mg, UNK
  5. MULTIVITAMIN                       /00097801/ [Concomitant]
     Dosage: UNK
  6. VITAMIN C                          /00008001/ [Concomitant]
     Dosage: 1000 mg, UNK
  7. STOOL SOFTENER [Concomitant]
     Dosage: UNK
  8. VITAMIN D3 [Concomitant]

REACTIONS (3)
  - Pain in extremity [Unknown]
  - Erythema [Unknown]
  - Chronic sinusitis [Unknown]
